FAERS Safety Report 17077826 (Version 6)
Quarter: 2020Q2

REPORT INFORMATION
  Report Type: Report from Study
  Country: GB (occurrence: GB)
  Receive Date: 20191126
  Receipt Date: 20200514
  Transmission Date: 20200713
  Serious: Yes (Death, Hospitalization)
  Sender: FDA-Public Use
  Company Number: NVSC2019GB044760

PATIENT
  Age: 56 Year
  Sex: Female

DRUGS (1)
  1. KISQALI [Suspect]
     Active Substance: RIBOCICLIB
     Indication: BREAST CANCER METASTATIC
     Dosage: 600 MG, QD
     Route: 048
     Dates: start: 20190806, end: 20191107

REACTIONS (8)
  - Confusional state [Recovered/Resolved with Sequelae]
  - Headache [Not Recovered/Not Resolved]
  - Second primary malignancy [Fatal]
  - Dizziness [Not Recovered/Not Resolved]
  - Streptococcal urinary tract infection [Recovered/Resolved with Sequelae]
  - Nausea [Not Recovered/Not Resolved]
  - Constipation [Not Recovered/Not Resolved]
  - Metastases to meninges [Fatal]

NARRATIVE: CASE EVENT DATE: 20190807
